FAERS Safety Report 16826634 (Version 1)
Quarter: 2019Q3

REPORT INFORMATION
  Report Type: Spontaneous
  Country: PT (occurrence: PT)
  Receive Date: 20190919
  Receipt Date: 20190919
  Transmission Date: 20191005
  Serious: Yes (Other)
  Sender: FDA-Public Use
  Company Number: PT-HIKMA PHARMACEUTICALS USA INC.-PT-H14001-19-46987

PATIENT
  Age: 79 Year
  Sex: Male

DRUGS (3)
  1. CEFAZOLIN [Suspect]
     Active Substance: CEFAZOLIN
     Indication: ANTIBIOTIC PROPHYLAXIS
     Dosage: ()
     Route: 065
  2. CEFTAZIDIME. [Suspect]
     Active Substance: CEFTAZIDIME
     Indication: PRODUCT USED FOR UNKNOWN INDICATION
     Dosage: ()
     Route: 065
  3. VANCOMYCIN [Concomitant]
     Active Substance: VANCOMYCIN
     Indication: SEPSIS
     Dosage: ()
     Route: 065

REACTIONS (5)
  - Neutrophilia [Recovered/Resolved]
  - Pyrexia [Recovered/Resolved]
  - Transaminases increased [Recovered/Resolved]
  - Leukocytosis [Recovered/Resolved]
  - Rash morbilliform [Recovered/Resolved]

NARRATIVE: CASE EVENT DATE: 201611
